FAERS Safety Report 11588375 (Version 1)
Quarter: 2015Q4

REPORT INFORMATION
  Report Type: Spontaneous
  Country: US (occurrence: None)
  Receive Date: 20151001
  Receipt Date: 20151001
  Transmission Date: 20160304
  Serious: Yes (Life-Threatening, Hospitalization, Disabling)
  Sender: FDA-Public Use
  Company Number: None

PATIENT
  Age: 52 Year
  Sex: Female
  Weight: 64.41 kg

DRUGS (12)
  1. ATORVASTATIN [Concomitant]
     Active Substance: ATORVASTATIN
  2. LEVEMIRE [Concomitant]
  3. PREMPRO [Suspect]
     Active Substance: ESTROGENS, CONJUGATED\MEDROXYPROGESTERONE ACETATE
     Indication: MENOPAUSAL SYMPTOMS
     Route: 048
  4. LETRIZOLE [Concomitant]
  5. CALTRATE [Concomitant]
     Active Substance: CALCIUM CARBONATE
  6. VITAMIN C [Concomitant]
     Active Substance: ASCORBIC ACID
  7. LOSARTAN. [Concomitant]
     Active Substance: LOSARTAN
  8. PREMPRO [Suspect]
     Active Substance: ESTROGENS, CONJUGATED\MEDROXYPROGESTERONE ACETATE
     Indication: HORMONE REPLACEMENT THERAPY
     Route: 048
  9. NOVALOG [Concomitant]
  10. METFORMIN [Concomitant]
     Active Substance: METFORMIN HYDROCHLORIDE
  11. BENEFIBER [Concomitant]
     Active Substance: STARCH, WHEAT
  12. PRENATAL VITAMIN [Concomitant]
     Active Substance: VITAMINS

REACTIONS (1)
  - Breast cancer female [None]

NARRATIVE: CASE EVENT DATE: 20130516
